FAERS Safety Report 11996307 (Version 1)
Quarter: 2016Q1

REPORT INFORMATION
  Report Type: Spontaneous
  Country: CA (occurrence: CA)
  Receive Date: 20160203
  Receipt Date: 20160203
  Transmission Date: 20160526
  Serious: Yes (Other)
  Sender: FDA-Public Use
  Company Number: CA-TEVA-631443ACC

PATIENT
  Age: 82 Year
  Sex: Male
  Weight: 70.37 kg

DRUGS (7)
  1. DIOVAN [Concomitant]
     Active Substance: VALSARTAN
  2. DIGOXIN. [Concomitant]
     Active Substance: DIGOXIN
  3. NOVO-LEVOFLOXACIN [Suspect]
     Active Substance: LEVOFLOXACIN
     Indication: LUNG INFECTION
     Dosage: 3500 MILLIGRAM DAILY;
     Route: 048
  4. BISOPROLOL [Concomitant]
     Active Substance: BISOPROLOL
  5. INDAPAMIDE. [Concomitant]
     Active Substance: INDAPAMIDE
  6. LIPITOR [Concomitant]
     Active Substance: ATORVASTATIN CALCIUM
  7. WARFARIN [Concomitant]
     Active Substance: WARFARIN

REACTIONS (7)
  - Abasia [Not Recovered/Not Resolved]
  - Arthralgia [Not Recovered/Not Resolved]
  - Balance disorder [Not Recovered/Not Resolved]
  - Gingival bleeding [Not Recovered/Not Resolved]
  - Insomnia [Not Recovered/Not Resolved]
  - Epistaxis [Not Recovered/Not Resolved]
  - International normalised ratio abnormal [Not Recovered/Not Resolved]
